FAERS Safety Report 10705669 (Version 5)
Quarter: 2015Q4

REPORT INFORMATION
  Report Type: Report from Study
  Country: US (occurrence: US)
  Receive Date: 20150112
  Receipt Date: 20151214
  Transmission Date: 20160304
  Serious: Yes (Hospitalization)
  Sender: FDA-Public Use
  Company Number: US-TEVA-533535USA

PATIENT
  Age: 68 Year
  Sex: Female

DRUGS (26)
  1. DOXORUBICIN [Suspect]
     Active Substance: DOXORUBICIN
     Indication: BREAST CANCER FEMALE
     Dosage: DAY 1 OF FOUR 14-DAY CYCLES
     Route: 042
     Dates: start: 20141015, end: 20141125
  2. PACLITAXEL. [Suspect]
     Active Substance: PACLITAXEL
     Indication: BREAST CANCER FEMALE
     Dosage: DAY 1 OF 12 WEEKLY CYCLES DURING CHEMOTHERAPY SEGMENT 1
     Route: 042
     Dates: start: 20140716, end: 20141008
  3. JANUVIA [Concomitant]
     Active Substance: SITAGLIPTIN PHOSPHATE
     Indication: DIABETES MELLITUS
     Dosage: 100 MILLIGRAM DAILY;
     Route: 048
     Dates: start: 2009
  4. ILEVRO [Concomitant]
     Active Substance: NEPAFENAC
     Indication: EYE INFLAMMATION
     Dosage: 0.3 %
     Route: 047
     Dates: start: 2013
  5. METFORMIN [Concomitant]
     Active Substance: METFORMIN HYDROCHLORIDE
     Indication: DIABETES MELLITUS
     Dosage: 2000 MILLIGRAM DAILY;
     Route: 048
     Dates: start: 1998
  6. DICLOFENAC [Concomitant]
     Active Substance: DICLOFENAC
     Indication: ANTIINFLAMMATORY THERAPY
  7. ATORVASTATIN [Concomitant]
     Active Substance: ATORVASTATIN
     Indication: HYPERLIPIDAEMIA
     Dosage: 80 MILLIGRAM DAILY;
     Route: 048
     Dates: start: 1998
  8. PANTOPRAZOLE [Concomitant]
     Active Substance: PANTOPRAZOLE SODIUM
     Indication: PROPHYLAXIS
     Dosage: 40 MILLIGRAM DAILY;
     Route: 048
     Dates: start: 1998
  9. BIOTIN [Concomitant]
     Active Substance: BIOTIN
     Indication: SUPPLEMENTATION THERAPY
     Dosage: 5000 MICROGRAM DAILY;
     Route: 048
     Dates: start: 2013
  10. DECADRAN [Concomitant]
     Indication: PREMEDICATION
     Route: 042
     Dates: start: 20140716
  11. ARANESP [Concomitant]
     Active Substance: DARBEPOETIN ALFA
     Indication: ANAEMIA
     Dosage: 21.4286 MICROGRAM DAILY;
     Route: 058
     Dates: start: 20141001, end: 20141209
  12. ABT-888 [Suspect]
     Active Substance: VELIPARIB
     Indication: BREAST CANCER FEMALE
     Route: 048
     Dates: start: 20140716, end: 20141007
  13. GLIPIZIDE. [Concomitant]
     Active Substance: GLIPIZIDE
     Indication: DIABETES MELLITUS
     Dosage: 40 MILLIGRAM DAILY;
     Route: 048
     Dates: start: 2009
  14. FARXIGA [Concomitant]
     Active Substance: DAPAGLIFLOZIN PROPANEDIOL
     Indication: DIABETES MELLITUS
     Dosage: 5 MILLIGRAM DAILY;
     Route: 048
     Dates: start: 2014
  15. ATIVAN [Concomitant]
     Active Substance: LORAZEPAM
     Indication: INSOMNIA
     Route: 048
     Dates: start: 20140731
  16. CARBOPLATIN. [Suspect]
     Active Substance: CARBOPLATIN
     Indication: BREAST CANCER FEMALE
     Dosage: AUC 6 DAY 1 OF FOUR 21-DAY CYCLES DURING CHEMOTHERAPY SEGMENT 1
     Route: 042
     Dates: start: 20140716, end: 20140917
  17. CYCLOPHOSPHAMIDE. [Suspect]
     Active Substance: CYCLOPHOSPHAMIDE
     Indication: BREAST CANCER FEMALE
     Dosage: DAY 1 OF FOUR 14-DAY CYCLES
     Route: 042
     Dates: start: 20141015, end: 20141125
  18. BYETTA [Concomitant]
     Active Substance: EXENATIDE
     Indication: DIABETES MELLITUS
     Dosage: 5 MICROGRAM DAILY;
     Route: 058
     Dates: start: 2012
  19. LEVOTHYROXINE. [Concomitant]
     Active Substance: LEVOTHYROXINE
     Indication: HYPOTHYROIDISM
     Dosage: 125 MICROGRAM DAILY;
     Route: 048
     Dates: start: 2004
  20. LISINOPRIL. [Concomitant]
     Active Substance: LISINOPRIL
     Indication: HYPERTENSION
     Dosage: 40 MILLIGRAM DAILY;
     Route: 048
     Dates: start: 2009
  21. DICLOFENAC [Concomitant]
     Active Substance: DICLOFENAC
     Indication: KNEE ARTHROPLASTY
     Dosage: 150 MILLIGRAM DAILY;
     Route: 048
     Dates: start: 2006
  22. ALOXI [Concomitant]
     Active Substance: PALONOSETRON HYDROCHLORIDE
     Indication: PREMEDICATION
     Route: 042
     Dates: start: 20140716
  23. FENOFIBRATE. [Concomitant]
     Active Substance: FENOFIBRATE
     Indication: HYPERLIPIDAEMIA
     Dosage: 134 MILLIGRAM DAILY;
     Route: 048
     Dates: start: 2009
  24. BENADRYL [Concomitant]
     Active Substance: DIPHENHYDRAMINE HYDROCHLORIDE
     Indication: PREMEDICATION
     Route: 048
     Dates: start: 20140716
  25. NEULASTA [Concomitant]
     Active Substance: PEGFILGRASTIM
     Indication: PROPHYLAXIS
     Dosage: .4286 MILLIGRAM DAILY;
     Route: 058
     Dates: start: 20141016, end: 20141126
  26. TYLENOL [Concomitant]
     Active Substance: ACETAMINOPHEN
     Indication: PREMEDICATION
     Route: 048
     Dates: start: 20140716

REACTIONS (1)
  - Febrile neutropenia [Recovered/Resolved]

NARRATIVE: CASE EVENT DATE: 20141204
